FAERS Safety Report 11220279 (Version 1)
Quarter: 2015Q2

REPORT INFORMATION
  Report Type: Spontaneous
  Country: US (occurrence: US)
  Receive Date: 20150625
  Receipt Date: 20150625
  Transmission Date: 20150821
  Serious: No
  Sender: FDA-Public Use
  Company Number: US-ASTRAZENECA-2015SE55379

PATIENT
  Sex: Female

DRUGS (36)
  1. ASPIRIN. [Suspect]
     Active Substance: ASPIRIN
     Route: 065
  2. METFORMIN [Concomitant]
     Active Substance: METFORMIN HYDROCHLORIDE
     Dosage: NON AZ PRODUCT, 500MG, 2 X DAY
  3. PAMELOR [Concomitant]
     Active Substance: NORTRIPTYLINE HYDROCHLORIDE
  4. DILTIAZEM [Concomitant]
     Active Substance: DILTIAZEM
     Dosage: 180MG ONCE A DAY
  5. MACRODANTON [Concomitant]
  6. LORAZEPAM. [Concomitant]
     Active Substance: LORAZEPAM
  7. CIPROFLOXACN [Concomitant]
     Active Substance: CIPROFLOXACIN
  8. STATIN [Concomitant]
     Active Substance: UNSPECIFIED INGREDIENT
  9. TOPROL XL [Concomitant]
     Active Substance: METOPROLOL SUCCINATE
  10. SULFAC [Concomitant]
     Active Substance: SULFACETAMIDE
     Route: 065
  11. DOXEPIN [Concomitant]
     Active Substance: DOXEPIN
  12. NOVAOCAINE [Concomitant]
  13. FUROSEMIDE. [Concomitant]
     Active Substance: FUROSEMIDE
     Dosage: 40 MG, ONCE A DAY
  14. CECLOR [Concomitant]
     Active Substance: CEFACLOR
     Route: 065
  15. VALIUM [Concomitant]
     Active Substance: DIAZEPAM
  16. MELOXICAM. [Concomitant]
     Active Substance: MELOXICAM
  17. UNIVASC [Concomitant]
     Active Substance: MOEXIPRIL HYDROCHLORIDE
  18. KLOR-CON [Concomitant]
     Active Substance: POTASSIUM CHLORIDE
     Dosage: ONCE A DAY
  19. LYRICA [Concomitant]
     Active Substance: PREGABALIN
  20. CRESTOR [Suspect]
     Active Substance: ROSUVASTATIN CALCIUM
     Route: 048
  21. ATENOLOL. [Concomitant]
     Active Substance: ATENOLOL
  22. ZOLOFT [Concomitant]
     Active Substance: SERTRALINE HYDROCHLORIDE
  23. XANAX [Concomitant]
     Active Substance: ALPRAZOLAM
  24. DIOVAN HCT [Concomitant]
     Active Substance: HYDROCHLOROTHIAZIDE\VALSARTAN
  25. METOPROLOL [Concomitant]
     Active Substance: METOPROLOL
     Dosage: 100 MG, ONCE A DAY
  26. PROZAC [Concomitant]
     Active Substance: FLUOXETINE HYDROCHLORIDE
     Route: 065
  27. LIPITOR [Concomitant]
     Active Substance: ATORVASTATIN CALCIUM
  28. LOTREL [Concomitant]
     Active Substance: AMLODIPINE BESYLATE\BENAZEPRIL HYDROCHLORIDE
  29. BEE STINGS [Concomitant]
  30. ACCUPRIL [Concomitant]
     Active Substance: QUINAPRIL HYDROCHLORIDE
  31. CLONIDINE. [Concomitant]
     Active Substance: CLONIDINE
  32. NAPROSYN [Suspect]
     Active Substance: NAPROXEN
     Route: 065
  33. SKELAXIN [Concomitant]
     Active Substance: METAXALONE
     Route: 065
  34. ENTEX LA [Concomitant]
     Active Substance: GUAIFENESIN\PHENYLEPHRINE HYDROCHLORIDE
  35. VERAPAMIL [Concomitant]
     Active Substance: VERAPAMIL HYDROCHLORIDE
  36. LEVOTHYROXINE [Concomitant]
     Active Substance: LEVOTHYROXINE
     Dosage: 150 MCG, ONCE A DAY

REACTIONS (6)
  - Back pain [Unknown]
  - Rhinorrhoea [Unknown]
  - Headache [Unknown]
  - Abdominal pain upper [Unknown]
  - Pain in extremity [Unknown]
  - Drug hypersensitivity [Unknown]
